FAERS Safety Report 16724331 (Version 1)
Quarter: 2019Q3

REPORT INFORMATION
  Report Type: Report from Study
  Country: US (occurrence: US)
  Receive Date: 20190821
  Receipt Date: 20190821
  Transmission Date: 20191005
  Serious: Yes (Hospitalization)
  Sender: FDA-Public Use
  Company Number: US-ROCHE-2379320

PATIENT
  Age: 75 Year
  Sex: Female
  Weight: 74.91 kg

DRUGS (2)
  1. OCREVUS [Suspect]
     Active Substance: OCRELIZUMAB
     Indication: PRIMARY PROGRESSIVE MULTIPLE SCLEROSIS
     Dosage: ADMINISTERED THROUGH SMART PORT ;ONGOING: YES?ON 26/JUN/2019, SHE RECEIVED THE MOST RECENT INFUSION
     Route: 065
     Dates: start: 20180425
  2. OXYBUTIN [Concomitant]
     Active Substance: OXYBUTYNIN
     Dosage: YES
     Route: 048

REACTIONS (3)
  - Urinary tract infection [Unknown]
  - Intestinal obstruction [Recovered/Resolved]
  - Diabetes mellitus [Not Recovered/Not Resolved]

NARRATIVE: CASE EVENT DATE: 201812
